FAERS Safety Report 8953444 (Version 1)
Quarter: 2012Q4

REPORT INFORMATION
  Report Type: 
  Country: US (occurrence: US)
  Receive Date: 20121206
  Receipt Date: 20121206
  Transmission Date: 20130627
  Serious: Yes (Hospitalization)
  Sender: FDA-Public Use
  Company Number: US-GLAXOSMITHKLINE-A1003728A

PATIENT
  Age: 39 Year
  Sex: Female

DRUGS (11)
  1. LAMOTRIGINE [Suspect]
     Indication: EPILEPSY
     Route: 048
     Dates: start: 2004, end: 20120927
  2. CYMBALTA [Concomitant]
  3. ESCITALOPRAM [Concomitant]
  4. AMPHETAMINES [Concomitant]
  5. DEXTROAMPHETAMINE [Concomitant]
  6. SPIRONOLACTONE [Concomitant]
  7. ARMOUR THYROID [Concomitant]
  8. FISH OIL [Concomitant]
  9. VITAMIN D3 [Concomitant]
  10. JUICE PLUS [Concomitant]
  11. TRAZODONE [Concomitant]

REACTIONS (21)
  - Grand mal convulsion [Not Recovered/Not Resolved]
  - Convulsion [Unknown]
  - Aphagia [Unknown]
  - Abdominal pain upper [Unknown]
  - Fatigue [Unknown]
  - Asthenia [Unknown]
  - Confusional state [Unknown]
  - Weight decreased [Unknown]
  - Pain [Unknown]
  - Amenorrhoea [Unknown]
  - Musculoskeletal chest pain [Unknown]
  - Visual impairment [Unknown]
  - Musculoskeletal pain [Unknown]
  - Rash [Unknown]
  - Scar [Unknown]
  - Laceration [Unknown]
  - Oesophageal pain [Unknown]
  - Throat irritation [Unknown]
  - Choking sensation [Unknown]
  - Gastric disorder [Unknown]
  - Nausea [Unknown]
